FAERS Safety Report 6645465-X (Version None)
Quarter: 2010Q1

REPORT INFORMATION
  Report Type: 
  Country: None (occurrence: None)
  Receive Date: 20100322
  Receipt Date: 20100311
  Transmission Date: 20100710
  Serious: Yes (Hospitalization)
  Sender: FDA-Public Use
  Company Number: CN-ASTRAZENECA-2010SE11259

PATIENT
  Sex: Male

DRUGS (2)
  1. PLENDIL [Suspect]
     Indication: HYPERTENSION
     Route: 048
  2. NATRILIX [Suspect]

REACTIONS (3)
  - BRAIN STEM INFARCTION [None]
  - GINGIVAL HYPERPLASIA [None]
  - GINGIVAL SWELLING [None]
